FAERS Safety Report 11103251 (Version 1)
Quarter: 2015Q2

REPORT INFORMATION
  Report Type: Spontaneous
  Country: US (occurrence: None)
  Receive Date: 20150508
  Receipt Date: 20150508
  Transmission Date: 20150821
  Serious: Yes (Other)
  Sender: FDA-Public Use
  Company Number: None

PATIENT
  Age: 61 Year
  Sex: Male
  Weight: 94.9 kg

DRUGS (2)
  1. LISINOPRIL. [Suspect]
     Active Substance: LISINOPRIL
  2. ALDACTONE [Suspect]
     Active Substance: SPIRONOLACTONE
     Indication: HYPERTENSION
     Route: 048
     Dates: start: 20150114, end: 20150208

REACTIONS (14)
  - Hyperkalaemia [None]
  - Acute kidney injury [None]
  - Asthenia [None]
  - Somnolence [None]
  - Bundle branch block right [None]
  - Mental status changes [None]
  - Dehydration [None]
  - Lethargy [None]
  - Disorientation [None]
  - Laboratory test interference [None]
  - Electrocardiogram QRS complex prolonged [None]
  - Electrocardiogram T wave peaked [None]
  - Fatigue [None]
  - Bradycardia [None]

NARRATIVE: CASE EVENT DATE: 20150208
